FAERS Safety Report 16924295 (Version 1)
Quarter: 2019Q4

REPORT INFORMATION
  Report Type: Spontaneous
  Country: DK (occurrence: DK)
  Receive Date: 20191016
  Receipt Date: 20191016
  Transmission Date: 20200122
  Serious: Yes (Other)
  Sender: FDA-Public Use
  Company Number: DK-PFIZER INC-2019440160

PATIENT
  Age: 47 Year
  Sex: Male

DRUGS (8)
  1. ZYPREXA [Suspect]
     Active Substance: OLANZAPINE
     Indication: DELUSION
     Dosage: 15 MG, 1X/DAY
     Route: 048
     Dates: start: 201106
  2. ALOPAM [Concomitant]
     Active Substance: OXAZEPAM
     Indication: OBSESSIVE-COMPULSIVE DISORDER
     Dosage: 10 MG, AS NEEDED, NO MORE THAN 3 TIMES DAILY.
     Route: 048
     Dates: start: 2011
  3. EFEXOR DEPOT [Suspect]
     Active Substance: VENLAFAXINE HYDROCHLORIDE
     Indication: OBSESSIVE-COMPULSIVE DISORDER
     Dosage: 150 MG, 1X/DAY
     Route: 048
     Dates: start: 2011
  4. SEROXAT [Suspect]
     Active Substance: PAROXETINE HYDROCHLORIDE
     Indication: DEPRESSION
     Dosage: 20 MG, 1X/DAY
     Route: 048
     Dates: start: 201004
  5. LYRICA [Concomitant]
     Active Substance: PREGABALIN
     Indication: OBSESSIVE-COMPULSIVE DISORDER
     Dosage: 150 MG, DAILY
     Route: 048
     Dates: start: 2011
  6. SEROQUEL [Suspect]
     Active Substance: QUETIAPINE FUMARATE
     Indication: PARANOID PERSONALITY DISORDER
     Dosage: 25 MG, DAILY, RISING TO 800 MG
     Route: 048
     Dates: start: 201111
  7. CIPRALEX [Suspect]
     Active Substance: ESCITALOPRAM OXALATE
     Indication: DEPRESSION
     Dosage: 15 MG, 1X/DAY
     Route: 048
     Dates: start: 200907
  8. VALDOXAN [Concomitant]
     Active Substance: AGOMELATINE
     Indication: DEPRESSION
     Dosage: UNK
     Route: 048

REACTIONS (15)
  - Memory impairment [Not Recovered/Not Resolved]
  - Personality change [Not Recovered/Not Resolved]
  - Nausea [Not Recovered/Not Resolved]
  - Anxiety [Not Recovered/Not Resolved]
  - Hallucination [Not Recovered/Not Resolved]
  - Hypoacusis [Not Recovered/Not Resolved]
  - Nightmare [Not Recovered/Not Resolved]
  - Delusion [Not Recovered/Not Resolved]
  - Altered state of consciousness [Not Recovered/Not Resolved]
  - Panic attack [Not Recovered/Not Resolved]
  - Obsessive thoughts [Not Recovered/Not Resolved]
  - Syncope [Unknown]
  - Dizziness [Not Recovered/Not Resolved]
  - Vomiting [Not Recovered/Not Resolved]
  - Cognitive disorder [Not Recovered/Not Resolved]

NARRATIVE: CASE EVENT DATE: 2011
